FAERS Safety Report 7911265-3 (Version None)
Quarter: 2011Q4

REPORT INFORMATION
  Report Type: 
  Country: None (occurrence: None)
  Receive Date: 20111114
  Receipt Date: 20111103
  Transmission Date: 20120403
  Serious: Yes (Hospitalization, Other)
  Sender: FDA-Public Use
  Company Number: BR-SHIRE-SPV1-2011-01380

PATIENT

DRUGS (1)
  1. REPLAGAL [Suspect]
     Indication: FABRY'S DISEASE
     Dosage: 4 VIALS, 1X/2WKS
     Dates: start: 20110501

REACTIONS (2)
  - JOINT DISLOCATION [None]
  - LOCALISED INFECTION [None]
